FAERS Safety Report 4968406-X (Version None)
Quarter: 2006Q2

REPORT INFORMATION
  Report Type: 
  Country: None (occurrence: None)
  Receive Date: 20060410
  Receipt Date: 20050823
  Transmission Date: 20061013
  Serious: Yes (Hospitalization, Disabling, Other)
  Sender: FDA-Public Use
  Company Number: US-MERCK-0508USA04098

PATIENT
  Age: 48 Year
  Sex: Male
  Weight: 111 kg

DRUGS (2)
  1. VIOXX [Suspect]
     Indication: ARTHRITIS
     Route: 048
     Dates: start: 20030501, end: 20031101
  2. ADVIL [Concomitant]
     Route: 065

REACTIONS (8)
  - ANGINA UNSTABLE [None]
  - BLOOD URINE PRESENT [None]
  - CHEST PAIN [None]
  - DEPRESSION [None]
  - FLANK PAIN [None]
  - MASS [None]
  - MYOCARDIAL INFARCTION [None]
  - ROAD TRAFFIC ACCIDENT [None]
